FAERS Safety Report 4566954-8 (Version None)
Quarter: 2005Q1

REPORT INFORMATION
  Report Type: 
  Country: None (occurrence: None)
  Receive Date: 20050201
  Receipt Date: 20030501
  Transmission Date: 20050727
  Serious: Yes (Other)
  Sender: FDA-Public Use
  Company Number: US-BRISTOL-MYERS SQUIBB COMPANY-12261533

PATIENT
  Age: 55 Year
  Sex: Female

DRUGS (7)
  1. STADOL [Suspect]
     Indication: MIGRAINE
     Dosage: DOSING: 10MG/ML
     Dates: start: 19930101, end: 19970101
  2. STADOL [Suspect]
     Indication: PAIN
     Dosage: DOSING: 10MG/ML
     Dates: start: 19930101, end: 19970101
  3. SEREVENT [Concomitant]
     Indication: ASTHMA
     Route: 055
  4. PROZAC [Concomitant]
  5. DEPAKOTE [Concomitant]
  6. TRAZODONE HCL [Concomitant]
     Route: 048
  7. FELDENE [Concomitant]
     Route: 048

REACTIONS (2)
  - CARDIAC DISORDER [None]
  - DEPENDENCE [None]
